FAERS Safety Report 10203230 (Version 1)
Quarter: 2014Q2

REPORT INFORMATION
  Report Type: Spontaneous
  Country: US (occurrence: US)
  Receive Date: 20140529
  Receipt Date: 20140529
  Transmission Date: 20141212
  Serious: No
  Sender: FDA-Public Use
  Company Number: US-BIOGENIDEC-2014BI050760

PATIENT
  Age: 72 Year
  Sex: Female

DRUGS (4)
  1. AVONEX [Suspect]
     Indication: MULTIPLE SCLEROSIS
     Route: 030
     Dates: start: 20130619, end: 20130619
  2. LINZESS [Concomitant]
     Indication: BLADDER DISORDER
  3. PROTONIX [Concomitant]
     Indication: BLADDER DISORDER
  4. MIRALAX [Concomitant]
     Indication: BLADDER DISORDER

REACTIONS (1)
  - Loss of control of legs [Unknown]
